FAERS Safety Report 12747097 (Version 2)
Quarter: 2016Q4

REPORT INFORMATION
  Report Type: Report from Study
  Country: JP (occurrence: JP)
  Receive Date: 20160915
  Receipt Date: 20161017
  Transmission Date: 20170207
  Serious: Yes (Death, Hospitalization, Other)
  Sender: FDA-Public Use
  Company Number: JP-INCYTE CORPORATION-2016IN003680

PATIENT
  Age: 83 Year
  Sex: Male

DRUGS (6)
  1. JAKAVI [Suspect]
     Active Substance: RUXOLITINIB
     Indication: MYELOFIBROSIS
     Dosage: 5 MG, BID
     Route: 048
     Dates: start: 20160516, end: 20160605
  2. RED BLOOD CELLS-LEUKOCYTES REDUCED [Concomitant]
     Indication: MYELOFIBROSIS
     Dosage: UNK
     Route: 065
     Dates: start: 20150406
  3. PRIMOBOLAN-DEPOT [Concomitant]
     Active Substance: METHENOLONE ENANTHATE
     Indication: MARROW HYPERPLASIA
     Dosage: 20 MG, UNK
     Route: 065
     Dates: start: 20120806
  4. JAKAVI [Suspect]
     Active Substance: RUXOLITINIB
     Dosage: 5 MG, BID
     Route: 048
     Dates: start: 20160620
  5. JAKAVI [Suspect]
     Active Substance: RUXOLITINIB
     Dosage: 10 MG, BID
     Route: 048
     Dates: start: 20160606, end: 20160619
  6. HYDREA [Concomitant]
     Active Substance: HYDROXYUREA
     Indication: MYELOFIBROSIS
     Dosage: 500MG - 2000MG
     Route: 048
     Dates: start: 20141125

REACTIONS (6)
  - White blood cell count increased [Unknown]
  - Myelofibrosis [Unknown]
  - Platelet count increased [Unknown]
  - Pneumonia bacterial [Recovering/Resolving]
  - Hepatic function abnormal [Unknown]
  - Muscle haemorrhage [Fatal]

NARRATIVE: CASE EVENT DATE: 20160605
